FAERS Safety Report 9212128 (Version 1)
Quarter: 2013Q2

REPORT INFORMATION
  Report Type: Spontaneous
  Country: US (occurrence: US)
  Receive Date: 20130404
  Receipt Date: 20130404
  Transmission Date: 20140414
  Serious: No
  Sender: FDA-Public Use
  Company Number: US-AMGEN-USASP2013021392

PATIENT
  Age: 52 Year
  Sex: Female

DRUGS (1)
  1. ENBREL [Suspect]
     Indication: ANKYLOSING SPONDYLITIS
     Dosage: 50 MG, QWK
     Dates: start: 20130313

REACTIONS (5)
  - Headache [Recovered/Resolved]
  - Injection site scab [Not Recovered/Not Resolved]
  - Injection site mass [Not Recovered/Not Resolved]
  - Herpes virus infection [Unknown]
  - Injection site rash [Not Recovered/Not Resolved]
